FAERS Safety Report 22185447 (Version 1)
Quarter: 2023Q2

REPORT INFORMATION
  Report Type: Spontaneous
  Country: US (occurrence: US)
  Receive Date: 20230407
  Receipt Date: 20230407
  Transmission Date: 20230722
  Serious: No
  Sender: FDA-Public Use
  Company Number: US-SA-SAC20230404000865

PATIENT
  Sex: Male

DRUGS (1)
  1. DUPIXENT [Suspect]
     Active Substance: DUPILUMAB
     Indication: Asthma
     Dosage: 300 MG, QOW
     Route: 058
     Dates: start: 20221201

REACTIONS (7)
  - Muscle spasms [Recovering/Resolving]
  - Eye disorder [Recovering/Resolving]
  - Somnolence [Unknown]
  - Hair growth abnormal [Unknown]
  - Dizziness [Unknown]
  - Toothache [Recovering/Resolving]
  - Nasopharyngitis [Unknown]
